FAERS Safety Report 7827574-2 (Version None)
Quarter: 2011Q4

REPORT INFORMATION
  Report Type: 
  Country: None (occurrence: None)
  Receive Date: 20111020
  Receipt Date: 20111013
  Transmission Date: 20120403
  Serious: Yes (Hospitalization)
  Sender: FDA-Public Use
  Company Number: PHHY2011FR91154

PATIENT
  Sex: Male

DRUGS (9)
  1. PARLODEL [Concomitant]
     Indication: PARKINSON'S DISEASE
     Dosage: UNK UKN, UNK
  2. STALEVO 100 [Suspect]
     Indication: PARKINSON'S DISEASE
     Dosage: 5 DF, DAILY
     Dates: start: 20080101
  3. REQUIP [Suspect]
     Indication: PARKINSON'S DISEASE
     Dosage: 2 MG, BID
     Dates: start: 20080101, end: 20110506
  4. AMANTADINE HCL [Suspect]
     Dosage: 1 DF, BID
     Dates: start: 20080101
  5. DOMPERIDONE [Concomitant]
     Dosage: 1 DF, BID
  6. STALEVO 100 [Suspect]
     Dosage: 75 MG, QD
     Dates: start: 20110506
  7. SELEGILINE HCL [Suspect]
     Indication: PARKINSON'S DISEASE
     Dosage: 1 DF, BID
     Dates: start: 20080101, end: 20110506
  8. STALEVO 100 [Suspect]
     Dosage: 50 MG, QID
     Dates: start: 20110506
  9. MODOPAR [Suspect]
     Indication: PARKINSON'S DISEASE
     Dosage: 62.5 MG, QD
     Dates: end: 20110506

REACTIONS (2)
  - DYSSTASIA [None]
  - DYSKINESIA [None]
